FAERS Safety Report 7568786-5 (Version None)
Quarter: 2011Q2

REPORT INFORMATION
  Report Type: 
  Country: None (occurrence: None)
  Receive Date: 20110623
  Receipt Date: 20110619
  Transmission Date: 20111010
  Serious: No
  Sender: FDA-Public Use
  Company Number: AU-ABBOTT-11P-008-0718274-00

PATIENT
  Sex: Male

DRUGS (1)
  1. HUMIRA [Suspect]
     Indication: CROHN'S DISEASE
     Dates: start: 20101101

REACTIONS (1)
  - ANAL ABSCESS [None]
